FAERS Safety Report 18162767 (Version 1)
Quarter: 2020Q3

REPORT INFORMATION
  Report Type: Spontaneous
  Country: US (occurrence: US)
  Receive Date: 20200818
  Receipt Date: 20200818
  Transmission Date: 20201103
  Serious: Yes (Death)
  Sender: FDA-Public Use
  Company Number: None

PATIENT
  Age: 71 Year
  Sex: Male
  Weight: 88.3 kg

DRUGS (22)
  1. ASCORBIC ACID. [Concomitant]
     Active Substance: ASCORBIC ACID
     Dates: start: 20200801, end: 20200814
  2. DEXAMETHASONE. [Concomitant]
     Active Substance: DEXAMETHASONE
     Dates: start: 20200801, end: 20200814
  3. PANTOPRAZOLE [Concomitant]
     Active Substance: PANTOPRAZOLE
     Dates: start: 20200802, end: 20200814
  4. ZINC SULFATE. [Concomitant]
     Active Substance: ZINC SULFATE
     Dates: start: 20200801, end: 20200814
  5. CARVEDILOL. [Concomitant]
     Active Substance: CARVEDILOL
     Dates: start: 20200801, end: 20200814
  6. INSULIN [Concomitant]
     Active Substance: INSULIN NOS
     Dates: start: 20200801, end: 20200812
  7. MELATONIN [Concomitant]
     Active Substance: MELATONIN
     Dates: start: 20200801, end: 20200813
  8. CEFTRIAXONE. [Concomitant]
     Active Substance: CEFTRIAXONE
     Dates: start: 20200801, end: 20200805
  9. PIPERACILLIN AND TAZOBACTAM [Concomitant]
     Active Substance: PIPERACILLIN SODIUM\TAZOBACTAM SODIUM
     Dates: start: 20200807, end: 20200814
  10. REMDESIVIR. [Suspect]
     Active Substance: REMDESIVIR
     Indication: COVID-19 PNEUMONIA
     Route: 042
     Dates: start: 20200810, end: 20200814
  11. FAMOTIDINE. [Concomitant]
     Active Substance: FAMOTIDINE
     Dates: start: 20200801, end: 20200801
  12. BENZONATATE. [Concomitant]
     Active Substance: BENZONATATE
     Dates: start: 20200809, end: 20200814
  13. CALCIUM ACETATE. [Concomitant]
     Active Substance: CALCIUM ACETATE
     Dates: start: 20200802, end: 20200813
  14. CLOPIDOGREL [Concomitant]
     Active Substance: CLOPIDOGREL BISULFATE
     Dates: start: 20200801, end: 20200814
  15. DORZOLAMIDE?TIMOLOL OPHTHALMIC SOLUTION [Concomitant]
     Dates: start: 20200801, end: 20200801
  16. DOXYCYCLINE. [Concomitant]
     Active Substance: DOXYCYCLINE
     Dates: start: 20200802, end: 20200811
  17. APIXABAN [Concomitant]
     Active Substance: APIXABAN
     Dates: start: 20200801, end: 20200814
  18. ATORVASTATIN [Concomitant]
     Active Substance: ATORVASTATIN
     Dates: start: 20200801, end: 20200813
  19. OMEGA?3 ACIDS [Concomitant]
     Active Substance: OMEGA-3 FATTY ACIDS
     Dates: start: 20200801, end: 20200802
  20. HYDRALAZINE [Concomitant]
     Active Substance: HYDRALAZINE HYDROCHLORIDE
     Dates: start: 20200803, end: 20200814
  21. BRIMONIDINE OPHTHLAMIC SOLUTION [Concomitant]
     Dates: start: 20200801, end: 20200814
  22. CHOLECALCIFEROL [Concomitant]
     Active Substance: CHOLECALCIFEROL
     Dates: start: 20200801, end: 20200814

REACTIONS (3)
  - Hyperkalaemia [None]
  - Haemodialysis [None]
  - Cardiac arrest [None]

NARRATIVE: CASE EVENT DATE: 20200815
